FAERS Safety Report 6943996-6 (Version None)
Quarter: 2010Q3

REPORT INFORMATION
  Report Type: 
  Country: None (occurrence: None)
  Receive Date: 20100827
  Receipt Date: 20100823
  Transmission Date: 20110219
  Serious: Yes (Other)
  Sender: FDA-Public Use
  Company Number: US-ASTRAZENECA-2007UW12053

PATIENT
  Age: 19729 Day
  Sex: Female
  Weight: 66.7 kg

DRUGS (9)
  1. SEROQUEL [Suspect]
     Indication: BIPOLAR DISORDER
     Dosage: 100-400 MG
     Route: 048
     Dates: start: 20030414, end: 20080101
  2. SEROQUEL [Suspect]
     Indication: DEPRESSION
     Dosage: 100-400 MG
     Route: 048
     Dates: start: 20030414, end: 20080101
  3. SEROQUEL [Suspect]
     Dosage: 100-400 MG
     Route: 048
     Dates: start: 20061101
  4. SEROQUEL [Suspect]
     Dosage: 100-400 MG
     Route: 048
     Dates: start: 20061101
  5. ZYPREXA [Concomitant]
     Dates: start: 20030101
  6. DEXATRIM [Concomitant]
     Indication: WEIGHT INCREASED
  7. ABILIFY [Concomitant]
     Dates: start: 20070101, end: 20080101
  8. PAROXETINE HCL [Concomitant]
  9. WELLBUTRIN XL [Concomitant]

REACTIONS (3)
  - BLOOD TRIGLYCERIDES INCREASED [None]
  - GALLBLADDER DISORDER [None]
  - TYPE 2 DIABETES MELLITUS [None]
